FAERS Safety Report 8341275-6 (Version None)
Quarter: 2012Q2

REPORT INFORMATION
  Report Type: 
  Country: None (occurrence: None)
  Receive Date: 20120507
  Receipt Date: 20120426
  Transmission Date: 20120825
  Serious: Yes (Hospitalization, Other)
  Sender: FDA-Public Use
  Company Number: US-ASTRAZENECA-2010SE26168

PATIENT
  Age: 81 Year
  Sex: Female

DRUGS (2)
  1. NEXIUM [Suspect]
     Route: 048
  2. CRESTOR [Suspect]
     Route: 048

REACTIONS (4)
  - LOCALISED INFECTION [None]
  - GENERAL PHYSICAL HEALTH DETERIORATION [None]
  - INTENTIONAL DRUG MISUSE [None]
  - MYOCARDIAL INFARCTION [None]
